FAERS Safety Report 8239507-8 (Version None)
Quarter: 2012Q1

REPORT INFORMATION
  Report Type: 
  Country: None (occurrence: None)
  Receive Date: 20120328
  Receipt Date: 20120326
  Transmission Date: 20120608
  Serious: No
  Sender: FDA-Public Use
  Company Number: US-PFIZER INC-2012078437

PATIENT
  Sex: Female
  Weight: 58 kg

DRUGS (17)
  1. ALBUTEROL SULFATE [Concomitant]
     Indication: CHRONIC OBSTRUCTIVE PULMONARY DISEASE
  2. ALBUTEROL [Concomitant]
     Indication: LUNG DISORDER
     Dosage: UNK
  3. FLOVENT [Concomitant]
     Indication: LUNG DISORDER
     Dosage: UNK
  4. SPIRIVA [Concomitant]
     Indication: CHRONIC OBSTRUCTIVE PULMONARY DISEASE
  5. VALIUM [Concomitant]
     Dosage: UNK
     Route: 048
  6. FLOVENT [Concomitant]
     Indication: CHRONIC OBSTRUCTIVE PULMONARY DISEASE
  7. KLONOPIN [Concomitant]
     Indication: ANXIETY
     Dosage: 1 MG, UNK
  8. RANITIDINE HYDROCHLORIDE [Concomitant]
     Indication: GASTRIC DISORDER
     Dosage: 150 MG, 2X/DAY
  9. GABAPENTIN [Suspect]
     Indication: TREMOR
     Dosage: 100 MG, DAILY
  10. TRIAMTERENE [Concomitant]
     Indication: ANXIETY
     Dosage: 10 MG, UNK
     Dates: start: 19980101
  11. VICODIN [Concomitant]
     Indication: ARTHRITIS
  12. CHANTIX [Concomitant]
     Indication: SMOKING CESSATION THERAPY
     Dosage: UNK
     Route: 048
  13. ALBUTEROL SULFATE [Concomitant]
     Indication: LUNG DISORDER
     Dosage: UNK
  14. ZOLOFT [Concomitant]
     Indication: DEPRESSION
     Dosage: 50 MG, DAILY
     Dates: start: 19960101
  15. ALBUTEROL [Concomitant]
     Indication: CHRONIC OBSTRUCTIVE PULMONARY DISEASE
  16. SPIRIVA [Concomitant]
     Indication: LUNG DISORDER
     Dosage: UNK
  17. VICODIN [Concomitant]
     Indication: BACK PAIN
     Dosage: UNK

REACTIONS (1)
  - DRUG INEFFECTIVE [None]
